FAERS Safety Report 8255594-5 (Version None)
Quarter: 2012Q2

REPORT INFORMATION
  Report Type: 
  Country: None (occurrence: None)
  Receive Date: 20120403
  Receipt Date: 20120319
  Transmission Date: 20120825
  Serious: Yes (Other)
  Sender: FDA-Public Use
  Company Number: DE-CELGENEUS-062-50794-12032024

PATIENT
  Sex: Female

DRUGS (5)
  1. VIDAZA [Suspect]
     Route: 041
  2. CYTARABINE [Suspect]
     Route: 041
  3. CYTARABINE [Suspect]
     Dosage: 1G/SQM
     Route: 041
  4. VIDAZA [Suspect]
     Route: 058
  5. DAUNORUBICIN HCL [Suspect]
     Route: 041

REACTIONS (19)
  - SOFT TISSUE INFECTION [None]
  - HYPERTENSION [None]
  - VENOUS THROMBOSIS [None]
  - BACTERAEMIA [None]
  - LEUKOPENIA [None]
  - DIARRHOEA [None]
  - MUCOSAL INFLAMMATION [None]
  - BACK PAIN [None]
  - HEADACHE [None]
  - NEUTROPENIA [None]
  - PYREXIA [None]
  - EPISTAXIS [None]
  - NAUSEA [None]
  - TONGUE COATED [None]
  - COUGH [None]
  - THROMBOCYTOPENIA [None]
  - RASH [None]
  - OEDEMA PERIPHERAL [None]
  - VOMITING [None]
